FAERS Safety Report 4858280-4 (Version None)
Quarter: 2005Q4

REPORT INFORMATION
  Report Type: 
  Country: None (occurrence: None)
  Receive Date: 20051219
  Receipt Date: 20050324
  Transmission Date: 20060501
  Serious: No
  Sender: FDA-Public Use
  Company Number: US-GLAXOSMITHKLINE-A0551394A

PATIENT
  Age: 71 Year

DRUGS (2)
  1. NICODERM CQ [Suspect]
  2. KLONOPIN [Concomitant]

REACTIONS (4)
  - CHOLINERGIC SYNDROME [None]
  - HEART RATE INCREASED [None]
  - NICOTINE DEPENDENCE [None]
  - NIGHTMARE [None]
